FAERS Safety Report 4736242-5 (Version None)
Quarter: 2005Q3

REPORT INFORMATION
  Report Type: 
  Country: None (occurrence: None)
  Receive Date: 20050804
  Receipt Date: 20050804
  Transmission Date: 20060218
  Serious: Yes (Hospitalization, Other)
  Sender: FDA-Public Use
  Company Number: None

PATIENT
  Sex: Female
  Weight: 80.5 kg

DRUGS (5)
  1. DAUNOMYCIN [Suspect]
     Indication: ACUTE LYMPHOCYTIC LEUKAEMIA
     Dosage: SEE IMAGE
     Route: 042
     Dates: start: 20050621
  2. VINCRISTINE SULFATE [Suspect]
     Dosage: SEE IMAGE
     Route: 042
     Dates: start: 20050621
  3. PREDNISONE [Suspect]
     Dosage: SEE IMAGE
     Route: 048
     Dates: start: 20050621
  4. ELSPAR [Suspect]
     Dosage: SEE IMAGE
     Route: 042
     Dates: start: 20050621
  5. METHOTREXATE [Suspect]
     Dosage: SEE IMAGE
     Route: 037
     Dates: start: 20050621

REACTIONS (9)
  - CEREBRAL ISCHAEMIA [None]
  - FUNGAL INFECTION [None]
  - HYPOAESTHESIA [None]
  - ISCHAEMIC STROKE [None]
  - LABORATORY TEST ABNORMAL [None]
  - MENINGIOMA [None]
  - PANCREATITIS [None]
  - PARAESTHESIA [None]
  - SENSORY LOSS [None]
